FAERS Safety Report 23427639 (Version 1)
Quarter: 2024Q1

REPORT INFORMATION
  Report Type: Spontaneous
  Country: DE (occurrence: DE)
  Receive Date: 20240122
  Receipt Date: 20240122
  Transmission Date: 20240410
  Serious: Yes (Other)
  Sender: FDA-Public Use
  Company Number: DE-PAIPHARMA-2024-DE-000003

PATIENT
  Age: 28 Year
  Sex: Female

DRUGS (2)
  1. CYCLOSPORINE [Suspect]
     Active Substance: CYCLOSPORINE
     Indication: Sjogren^s syndrome
     Dosage: UNKNOWN
     Route: 065
  2. PREDNISOLONE [Suspect]
     Active Substance: PREDNISOLONE
     Indication: Sjogren^s syndrome
     Dosage: 10 MG/KG
     Route: 042

REACTIONS (1)
  - Cytomegalovirus colitis [Unknown]
